FAERS Safety Report 10170993 (Version 1)
Quarter: 2014Q2

REPORT INFORMATION
  Report Type: Spontaneous
  Country: US (occurrence: US)
  Receive Date: 20140514
  Receipt Date: 20140514
  Transmission Date: 20141212
  Serious: Yes (Other)
  Sender: FDA-Public Use
  Company Number: US-ELI_LILLY_AND_COMPANY-US201405002105

PATIENT
  Age: 50 Year
  Sex: Male

DRUGS (4)
  1. EFFIENT [Suspect]
     Indication: ACUTE MYOCARDIAL INFARCTION
     Dosage: 60 MG, SINGLE
     Route: 065
     Dates: start: 201404, end: 201404
  2. EFFIENT [Suspect]
     Indication: PERCUTANEOUS CORONARY INTERVENTION
  3. ANGIOMAX [Concomitant]
  4. ASPIRIN [Concomitant]

REACTIONS (2)
  - Haemorrhage intracranial [Unknown]
  - Visual impairment [Unknown]
